FAERS Safety Report 6530044-5 (Version None)
Quarter: 2009Q4

REPORT INFORMATION
  Report Type: 
  Country: None (occurrence: None)
  Receive Date: 20091231
  Receipt Date: 20091218
  Transmission Date: 20100525
  Serious: Yes (Hospitalization)
  Sender: FDA-Public Use
  Company Number: 2009AL007957

PATIENT
  Age: 70 Year
  Sex: Female

DRUGS (3)
  1. CITALOPRAM HYDROBROMIDE [Suspect]
     Dosage: 20 MG;QD;PO
     Route: 048
     Dates: end: 20050901
  2. ESCITALOPRAM [Concomitant]
  3. ABILIFY [Concomitant]

REACTIONS (3)
  - CARCINOID TUMOUR PULMONARY [None]
  - CHEST DISCOMFORT [None]
  - HOT FLUSH [None]
